FAERS Safety Report 5234393-2 (Version None)
Quarter: 2007Q1

REPORT INFORMATION
  Report Type: 
  Country: None (occurrence: None)
  Receive Date: 20070207
  Receipt Date: 20070207
  Transmission Date: 20070707
  Serious: Yes (Hospitalization)
  Sender: FDA-Public Use
  Company Number: None

PATIENT
  Sex: Female
  Weight: 20.5 kg

DRUGS (3)
  1. CISPLATIN [Suspect]
     Indication: BONE SARCOMA
     Dosage: 384 MG
  2. METHOTREXATE [Suspect]
     Indication: BONE SARCOMA
     Dosage: 117 G
  3. PEG-INTRON [Suspect]
     Indication: BONE SARCOMA
     Dosage: 10 MCG

REACTIONS (13)
  - ABDOMINAL PAIN [None]
  - ANOREXIA [None]
  - CONGESTIVE CARDIOMYOPATHY [None]
  - FATIGUE [None]
  - GENERAL PHYSICAL HEALTH DETERIORATION [None]
  - HEPATIC FUNCTION ABNORMAL [None]
  - HYPOTENSION [None]
  - METABOLIC ACIDOSIS [None]
  - PAIN [None]
  - PYREXIA [None]
  - RENAL FAILURE [None]
  - TACHYCARDIA [None]
  - VOMITING [None]
